FAERS Safety Report 5298426-X (Version None)
Quarter: 2007Q2

REPORT INFORMATION
  Report Type: 
  Country: None (occurrence: None)
  Receive Date: 20070416
  Receipt Date: 20070404
  Transmission Date: 20071010
  Serious: Yes (Other)
  Sender: FDA-Public Use
  Company Number: FR-PFIZER INC-2007028289

PATIENT

DRUGS (1)
  1. GENOTONORM [Suspect]
     Route: 058

REACTIONS (1)
  - HYDRONEPHROSIS [None]
